FAERS Safety Report 7935636-4 (Version None)
Quarter: 2011Q4

REPORT INFORMATION
  Report Type: 
  Country: None (occurrence: None)
  Receive Date: 20111118
  Receipt Date: 20111103
  Transmission Date: 20120403
  Serious: Yes (Hospitalization, Other)
  Sender: FDA-Public Use
  Company Number: 2011110054

PATIENT
  Age: 27 Year
  Sex: Female

DRUGS (7)
  1. ANALGESICS [Concomitant]
  2. ZOLPIDEM [Suspect]
     Indication: INSOMNIA RELATED TO ANOTHER MENTAL CONDITION
     Dosage: 10-20 MG (DAILY)
  3. FLUOXETINE (FLUEXITINE) [Concomitant]
  4. ZOLPIDEM [Suspect]
     Indication: ANXIETY
     Dosage: 100-200 MG (DAILY, DURING THE DAY AND AT BEDTIME)
  5. PREDNISOLONE [Concomitant]
  6. ZOLPIDEM [Suspect]
     Indication: MOOD SWINGS
     Dosage: 20 MG, DAILY
  7. METHYLPREDNISOLONE [Concomitant]

REACTIONS (20)
  - MUSCLE RIGIDITY [None]
  - TREMOR [None]
  - LEUKOCYTOSIS [None]
  - IMMOBILE [None]
  - DEPRESSION [None]
  - BLOOD PRESSURE INCREASED [None]
  - HAEMATURIA [None]
  - DROOLING [None]
  - WAXY FLEXIBILITY [None]
  - PYURIA [None]
  - CATATONIA [None]
  - INTENTIONAL DRUG MISUSE [None]
  - PROTRUSION TONGUE [None]
  - CONVULSION [None]
  - AUTONOMIC NERVOUS SYSTEM IMBALANCE [None]
  - STARING [None]
  - TACHYCARDIA [None]
  - WITHDRAWAL SYNDROME [None]
  - ANKYLOSING SPONDYLITIS [None]
  - HYPERHIDROSIS [None]
